FAERS Safety Report 4814520-9 (Version None)
Quarter: 2005Q4

REPORT INFORMATION
  Report Type: 
  Country: None (occurrence: None)
  Receive Date: 20051028
  Receipt Date: 20051025
  Transmission Date: 20060501
  Serious: Yes (Disabling)
  Sender: FDA-Public Use
  Company Number: US-MERCK-0510USA09213

PATIENT
  Sex: Female

DRUGS (1)
  1. VIOXX [Suspect]
     Indication: PAIN
     Route: 048

REACTIONS (2)
  - CEREBROVASCULAR ACCIDENT [None]
  - PULMONARY EMBOLISM [None]
